FAERS Safety Report 4977120-6 (Version None)
Quarter: 2006Q1

REPORT INFORMATION
  Report Type: 
  Country: None (occurrence: None)
  Receive Date: 20060223
  Receipt Date: 20050601
  Transmission Date: 20060701
  Serious: Yes (Other)
  Sender: FDA-Public Use
  Company Number: HQWYE072601JUN05

PATIENT
  Age: 62 Year
  Sex: Female
  Weight: 74.91 kg

DRUGS (7)
  1. EFFEXOR [Suspect]
     Indication: DEPRESSION
     Dosage: ORAL
     Route: 048
     Dates: start: 20050304
  2. OXYCODONE (OXYCODONE, ) [Suspect]
     Indication: PAIN
     Dosage: 80 MG 3X PER 1 DAY, ORAL
     Route: 048
     Dates: end: 20050418
  3. XYREM [Suspect]
     Indication: INSOMNIA
     Dosage: 3 G 2X PER 1 DAY, ORAL
     Route: 048
     Dates: start: 20050401, end: 20050416
  4. COZAAR [Concomitant]
  5. HYDROCHLOROTHIAZIDE [Concomitant]
  6. SOMA [Concomitant]
  7. FLONASE [Concomitant]

REACTIONS (6)
  - BLOOD PRESSURE INCREASED [None]
  - CONDITION AGGRAVATED [None]
  - DISSOCIATION [None]
  - HEADACHE [None]
  - NAUSEA [None]
  - SPEECH DISORDER [None]
